FAERS Safety Report 10100355 (Version 2)
Quarter: 2014Q2

REPORT INFORMATION
  Report Type: Report from Study
  Country: BR (occurrence: BR)
  Receive Date: 20140423
  Receipt Date: 20140423
  Transmission Date: 20141212
  Serious: Yes (Hospitalization, Other)
  Sender: FDA-Public Use
  Company Number: PHHY2014BR033045

PATIENT
  Sex: Male
  Weight: 97 kg

DRUGS (11)
  1. DIOVAN [Suspect]
     Indication: HYPERTENSION
     Dosage: 1 DF (320 MG), DAILY
     Route: 048
     Dates: end: 201109
  2. DIOVAN [Suspect]
     Dosage: 1 DF (320 MG ), UNK
     Dates: start: 20140315
  3. DIOVAN AMLO FIX [Suspect]
     Indication: CARDIAC DISORDER
     Dosage: 1 DF (320 MG VALS/ 5 MG AMLO), DAILY IN THE MORNING
     Route: 048
  4. DIOVAN AMLO FIX [Suspect]
     Indication: BLOOD PRESSURE MANAGEMENT
  5. ATENOLOL [Concomitant]
     Indication: HEART RATE INCREASED
     Dosage: 1 DF, (25 MG) DAILY
     Route: 048
  6. ATENOLOL [Concomitant]
     Indication: CARDIAC DISORDER
  7. SIMVASTATIN [Concomitant]
     Indication: CARDIAC DISORDER
     Dosage: 10 MG, UNK
  8. OMEPRAZOLE [Concomitant]
     Indication: ABDOMINAL DISCOMFORT
     Dosage: 20 MG, UNK
  9. AAS [Concomitant]
     Indication: ANTICOAGULANT THERAPY
     Dosage: 100 MG, UNK
     Route: 048
  10. SINVASTACOR [Concomitant]
     Indication: CARDIAC DISORDER
     Dosage: 10 MG, UNK
     Route: 048
  11. NIMODIPINO [Concomitant]
     Indication: CARDIAC DISORDER
     Dosage: 30 MG, UNK

REACTIONS (11)
  - Cerebrovascular accident [Recovered/Resolved]
  - Speech disorder [Recovered/Resolved]
  - Fatigue [Recovered/Resolved]
  - Benign neoplasm of skin [Recovered/Resolved]
  - Urinary tract disorder [Recovered/Resolved]
  - Memory impairment [Recovered/Resolved]
  - Ocular hyperaemia [Not Recovered/Not Resolved]
  - Skin disorder [Unknown]
  - Abdominal distension [Recovered/Resolved]
  - Micturition disorder [Recovered/Resolved]
  - Wrong drug administered [Unknown]
